FAERS Safety Report 8859049 (Version 1)
Quarter: 2012Q4

REPORT INFORMATION
  Report Type: Spontaneous
  Country: US (occurrence: None)
  Receive Date: 20121024
  Receipt Date: 20121024
  Transmission Date: 20130627
  Serious: Yes (Death, Other)
  Sender: FDA-Public Use
  Company Number: None

PATIENT
  Age: 91 Year
  Sex: Female
  Weight: 60 kg

DRUGS (1)
  1. FEIBA [Suspect]
     Dates: start: 20120811, end: 20120813

REACTIONS (2)
  - Fall [None]
  - Balance disorder [None]
